FAERS Safety Report 8462286-6 (Version None)
Quarter: 2012Q2

REPORT INFORMATION
  Report Type: 
  Country: None (occurrence: None)
  Receive Date: 20120615
  Receipt Date: 20120531
  Transmission Date: 20120825
  Serious: Yes (Life-Threatening, Hospitalization, Disabling, Congenital Anomaly)
  Sender: FDA-Public Use
  Company Number: TCI2012A00463

PATIENT
  Sex: Male

DRUGS (6)
  1. CANDESARTAN CILEXETIL [Suspect]
     Dosage: 8 MG (8 MG,1 IN 1 D) TRANSPLACENTAL
     Route: 064
  2. AMARYL [Concomitant]
  3. ACTOS [Concomitant]
  4. CONIEL (BENIDIPINE HYDROCHLORIDE) [Concomitant]
  5. THEO-DUR [Concomitant]
  6. ONON (PRANLUKAST) [Concomitant]

REACTIONS (8)
  - TALIPES [None]
  - CONGENITAL ABSENCE OF CRANIAL VAULT [None]
  - NEONATAL ASPHYXIA [None]
  - PULMONARY HYPOPLASIA [None]
  - PERITONEAL DIALYSIS [None]
  - RENAL FAILURE NEONATAL [None]
  - OLIGURIA [None]
  - MATERNAL DRUGS AFFECTING FOETUS [None]
